FAERS Safety Report 7170837-7 (Version None)
Quarter: 2010Q4

REPORT INFORMATION
  Report Type: 
  Country: None (occurrence: None)
  Receive Date: 20101217
  Receipt Date: 20101210
  Transmission Date: 20110411
  Serious: Yes (Hospitalization, Other)
  Sender: FDA-Public Use
  Company Number: GB-JNJFOC-20101204492

PATIENT
  Age: 64 Year
  Sex: Female
  Weight: 82 kg

DRUGS (3)
  1. RISPERIDONE [Suspect]
     Indication: SCHIZOPHRENIA
     Route: 030
  2. ABILIFY [Suspect]
     Indication: SCHIZOPHRENIA
     Route: 048
  3. DIAZEPAM [Concomitant]
     Indication: ILL-DEFINED DISORDER
     Route: 065

REACTIONS (4)
  - ALANINE AMINOTRANSFERASE INCREASED [None]
  - BLOOD ALKALINE PHOSPHATASE INCREASED [None]
  - GAMMA-GLUTAMYLTRANSFERASE INCREASED [None]
  - HOSPITALISATION [None]
